FAERS Safety Report 23504666 (Version 1)
Quarter: 2024Q1

REPORT INFORMATION
  Report Type: Report from Study
  Country: US (occurrence: US)
  Receive Date: 20240209
  Receipt Date: 20240209
  Transmission Date: 20240410
  Serious: Yes (Hospitalization)
  Sender: FDA-Public Use
  Company Number: US-ABBVIE-5624598

PATIENT
  Age: 74 Year
  Sex: Female

DRUGS (1)
  1. SKYRIZI [Suspect]
     Active Substance: RISANKIZUMAB-RZAA
     Indication: Psoriasis
     Route: 058
     Dates: start: 20220928

REACTIONS (3)
  - Blood pressure increased [Recovering/Resolving]
  - Chest pain [Recovering/Resolving]
  - Pneumonia [Recovering/Resolving]

NARRATIVE: CASE EVENT DATE: 20240124
